FAERS Safety Report 6630488-7 (Version None)
Quarter: 2010Q1

REPORT INFORMATION
  Report Type: 
  Country: None (occurrence: None)
  Receive Date: 20100311
  Receipt Date: 20090623
  Transmission Date: 20100710
  Serious: No
  Sender: FDA-Public Use
  Company Number: US-BIOGENIDEC-2009BI019449

PATIENT
  Sex: Female
  Weight: 49 kg

DRUGS (2)
  1. AVONEX [Suspect]
     Indication: MULTIPLE SCLEROSIS
     Route: 030
     Dates: start: 20070613, end: 20081228
  2. AVONEX [Suspect]
     Route: 030
     Dates: start: 20081115

REACTIONS (2)
  - INFLUENZA LIKE ILLNESS [None]
  - WEIGHT DECREASED [None]
